FAERS Safety Report 6667241-4 (Version None)
Quarter: 2010Q2

REPORT INFORMATION
  Report Type: 
  Country: None (occurrence: None)
  Receive Date: 20100405
  Receipt Date: 20100324
  Transmission Date: 20101027
  Serious: Yes (Other)
  Sender: FDA-Public Use
  Company Number: BR-PFIZER INC-2010038117

PATIENT
  Age: 56 Year
  Sex: Female
  Weight: 67 kg

DRUGS (2)
  1. XALATAN [Suspect]
     Indication: GLAUCOMA
     Dosage: 3 UG (1.5 UG IN EACH EYE) DAILY
     Route: 047
     Dates: start: 20090804
  2. MONTELUKAST SODIUM [Concomitant]
     Indication: ALLERGIC RESPIRATORY DISEASE
     Dosage: UNK

REACTIONS (6)
  - ABNORMAL SENSATION IN EYE [None]
  - EYE IRRITATION [None]
  - EYE PRURITUS [None]
  - FOREIGN BODY SENSATION IN EYES [None]
  - INCORRECT DOSE ADMINISTERED [None]
  - VISION BLURRED [None]
